FAERS Safety Report 8844568 (Version 1)
Quarter: 2012Q4

REPORT INFORMATION
  Report Type: Spontaneous
  Country: US (occurrence: None)
  Receive Date: 20121016
  Receipt Date: 20121016
  Transmission Date: 20130627
  Serious: Yes (Hospitalization)
  Sender: FDA-Public Use
  Company Number: None

PATIENT
  Age: 41 Year
  Sex: Male
  Weight: 66 kg

DRUGS (2)
  1. IBUPROFEN PM [Suspect]
     Indication: INSOMNIA
     Dosage: recent, 200 mg (1-2 tablet) q4hrs, PO
     Route: 048
  2. ZANTAC [Concomitant]

REACTIONS (3)
  - Anaemia [None]
  - Gastric ulcer [None]
  - Duodenal ulcer [None]
